FAERS Safety Report 8422442-X (Version None)
Quarter: 2012Q2

REPORT INFORMATION
  Report Type: 
  Country: None (occurrence: None)
  Receive Date: 20120608
  Receipt Date: 20120605
  Transmission Date: 20120825
  Serious: Yes (Other)
  Sender: FDA-Public Use
  Company Number: US-PFIZER INC-2012135339

PATIENT
  Sex: Female
  Weight: 73 kg

DRUGS (5)
  1. SYNTHROID [Concomitant]
     Indication: THYROID DISORDER
     Dosage: UNK
  2. LYRICA [Suspect]
     Indication: MYALGIA
     Dosage: 150 MG, 1X/DAY
     Route: 048
     Dates: start: 20120601, end: 20120605
  3. IMIPRAMINE [Concomitant]
     Indication: GASTRIC DISORDER
     Dosage: 50 MG, UNK
  4. LYRICA [Suspect]
     Indication: NEURALGIA
  5. LYRICA [Suspect]
     Indication: FIBROMYALGIA

REACTIONS (13)
  - DYSPHONIA [None]
  - DRY MOUTH [None]
  - HYPERSENSITIVITY [None]
  - DYSGEUSIA [None]
  - MENTAL IMPAIRMENT [None]
  - EYE SWELLING [None]
  - PAIN [None]
  - SWELLING FACE [None]
  - BURNING SENSATION [None]
  - RASH [None]
  - INCORRECT DOSE ADMINISTERED [None]
  - FEELING JITTERY [None]
  - MALAISE [None]
